FAERS Safety Report 4322864-2 (Version None)
Quarter: 2004Q1

REPORT INFORMATION
  Report Type: 
  Country: None (occurrence: None)
  Receive Date: 20040322
  Receipt Date: 20040309
  Transmission Date: 20041129
  Serious: Yes (Death)
  Sender: FDA-Public Use
  Company Number: 2003-110302-NL

PATIENT
  Age: 63 Year
  Sex: Male

DRUGS (10)
  1. DANAPAROID SODIUM [Suspect]
     Indication: DISSEMINATED INTRAVASCULAR COAGULATION
     Dosage: SEE IMAGE, INTRAVENOUS NOS
     Route: 042
     Dates: start: 20030816, end: 20030816
  2. DANAPAROID SODIUM [Suspect]
     Indication: DISSEMINATED INTRAVASCULAR COAGULATION
     Dosage: SEE IMAGE, INTRAVENOUS NOS
     Route: 042
     Dates: start: 20030817, end: 20030818
  3. DANAPAROID SODIUM [Suspect]
     Indication: DISSEMINATED INTRAVASCULAR COAGULATION
     Dosage: SEE IMAGE, INTRAVENOUS NOS
     Route: 042
     Dates: start: 20030819, end: 20030819
  4. TEICOPLANIN [Concomitant]
  5. OMEGACIN [Concomitant]
  6. FUNGUARD [Concomitant]
  7. LENOGRASTIM [Concomitant]
  8. ALBUMIN (HUMAN) [Concomitant]
  9. PREDNISOLONE [Concomitant]
  10. BETAMETHASONE [Concomitant]

REACTIONS (6)
  - BLOOD BILIRUBIN INCREASED [None]
  - BLOOD CREATININE INCREASED [None]
  - BLOOD UREA INCREASED [None]
  - COAGULOPATHY [None]
  - SEPSIS [None]
  - WHITE BLOOD CELL COUNT DECREASED [None]
